FAERS Safety Report 11047340 (Version 1)
Quarter: 2015Q2

REPORT INFORMATION
  Report Type: Spontaneous
  Country: US (occurrence: None)
  Receive Date: 20150417
  Receipt Date: 20150417
  Transmission Date: 20150821
  Serious: No
  Sender: FDA-Public Use
  Company Number: None

PATIENT
  Sex: Female

DRUGS (1)
  1. HUMIRA [Suspect]
     Active Substance: ADALIMUMAB
     Indication: PSORIATIC ARTHROPATHY
     Dosage: 2 PENS ON DAY ONE, THEN 1 PEN ON DAY 8, ?INJECT 2 PENS ON DAY 1 THEN 1
     Route: 058
     Dates: start: 20150319

REACTIONS (1)
  - Wrong technique in drug usage process [None]
